FAERS Safety Report 8205767-2 (Version None)
Quarter: 2012Q1

REPORT INFORMATION
  Report Type: 
  Country: None (occurrence: None)
  Receive Date: 20120313
  Receipt Date: 20120308
  Transmission Date: 20120608
  Serious: Yes (Other)
  Sender: FDA-Public Use
  Company Number: US-PFIZER INC-2012063020

PATIENT
  Sex: Male
  Weight: 118 kg

DRUGS (5)
  1. ACETYLSALICYLIC ACID [Concomitant]
     Indication: CARDIAC DISORDER
     Dosage: 325 MG,DAILY
  2. CALAN - SLOW RELEASE [Concomitant]
     Indication: CARDIAC DISORDER
     Dosage: 240 MG,DAILY
  3. LIPITOR [Suspect]
     Indication: BLOOD CHOLESTEROL INCREASED
     Dosage: 10 MG,DAILY
     Route: 048
     Dates: end: 20120201
  4. LIPITOR [Suspect]
     Dosage: 20 MG, DAILY
     Dates: start: 20120201
  5. ALDACTAZIDE [Concomitant]
     Indication: CARDIAC DISORDER
     Dosage: 25 MG,DAILY

REACTIONS (5)
  - PAIN [None]
  - LETHARGY [None]
  - BLOOD TRIGLYCERIDES INCREASED [None]
  - BLOOD CHOLESTEROL INCREASED [None]
  - FATIGUE [None]
